FAERS Safety Report 8710374 (Version 2)
Quarter: 2012Q4

REPORT INFORMATION
  Report Type: 
  Country: US (occurrence: US)
  Receive Date: 20120807
  Receipt Date: 20120830
  Transmission Date: 20130627
  Serious: Yes (Other)
  Sender: FDA-Public Use
  Company Number: US-CELGENEUS-163-21880-12072805

PATIENT
  Sex: Female

DRUGS (13)
  1. REVLIMID [Suspect]
     Indication: MULTIPLE MYELOMA
     Dosage: 25 Milligram
     Route: 048
     Dates: start: 200611, end: 201109
  2. REVLIMID [Suspect]
     Dosage: 10 Milligram
     Route: 048
     Dates: start: 201202, end: 201204
  3. VELCADE [Concomitant]
     Indication: DRUG USE FOR UNKNOWN INDICATION
     Route: 065
     Dates: start: 201202, end: 201204
  4. DEXAMETHASONE [Concomitant]
     Indication: DRUG USE FOR UNKNOWN INDICATION
     Route: 065
     Dates: start: 201202, end: 201204
  5. DACOGEN [Concomitant]
     Indication: DRUG USE FOR UNKNOWN INDICATION
     Route: 065
  6. ARANESP [Concomitant]
     Indication: DRUG USE FOR UNKNOWN INDICATION
     Dosage: 100 Milligram
     Route: 058
     Dates: start: 200402, end: 201204
  7. FOSAMAX [Concomitant]
     Indication: OSTEOPOROSIS
     Dosage: 20 Milligram
     Route: 065
     Dates: start: 200402
  8. NEURONTIN [Concomitant]
     Indication: NEUROPATHY
     Dosage: 300 Milligram
     Route: 065
     Dates: start: 200409
  9. PLATELETS [Concomitant]
     Indication: FULL BLOOD COUNT DECREASED
     Dosage: 14 units
     Route: 041
     Dates: start: 20120529, end: 20120806
  10. LEVAQUIN [Concomitant]
     Indication: DRUG USE FOR UNKNOWN INDICATION
     Dosage: 500 Milligram
     Dates: start: 20120604
  11. VALTREX [Concomitant]
     Indication: DRUG USE FOR UNKNOWN INDICATION
     Dosage: 500 Milligram
     Dates: start: 20120604
  12. DIFLUCAN [Concomitant]
     Indication: DRUG USE FOR UNKNOWN INDICATION
     Dosage: 200 Milligram
     Dates: start: 20120604
  13. RED BLOOD CELLS [Concomitant]
     Indication: FULL BLOOD COUNT DECREASED
     Dosage: 16 units
     Route: 041
     Dates: start: 20120514, end: 20120730

REACTIONS (1)
  - Acute myeloid leukaemia [Not Recovered/Not Resolved]
